FAERS Safety Report 8182445-X (Version None)
Quarter: 2012Q1

REPORT INFORMATION
  Report Type: 
  Country: None (occurrence: None)
  Receive Date: 20120305
  Receipt Date: 20120227
  Transmission Date: 20120608
  Serious: Yes (Hospitalization)
  Sender: FDA-Public Use
  Company Number: US-BIOGENIDEC-2011BI046842

PATIENT
  Age: 60 Year
  Sex: Female

DRUGS (1)
  1. TYSABRI [Suspect]
     Indication: MULTIPLE SCLEROSIS
     Route: 042
     Dates: start: 20111111, end: 20111111

REACTIONS (3)
  - BRONCHOPULMONARY ASPERGILLOSIS [None]
  - ACUTE MYELOID LEUKAEMIA [None]
  - PNEUMONIA FUNGAL [None]
